FAERS Safety Report 20141366 (Version 1)
Quarter: 2021Q4

REPORT INFORMATION
  Report Type: Spontaneous
  Country: US (occurrence: US)
  Receive Date: 20211202
  Receipt Date: 20211202
  Transmission Date: 20220304
  Serious: Yes (Hospitalization)
  Sender: FDA-Public Use
  Company Number: US-MYLANLABS-2021M1089819

PATIENT
  Age: 72 Year
  Sex: Female
  Weight: 93 kg

DRUGS (13)
  1. ROSUVASTATIN [Interacting]
     Active Substance: ROSUVASTATIN
     Indication: Hyperlipidaemia
     Dosage: 20 MILLIGRAM, QD (EVERY NIGHT AT BEDTIME)
     Route: 048
  2. TICAGRELOR [Interacting]
     Active Substance: TICAGRELOR
     Indication: Product used for unknown indication
     Dosage: 90 MILLIGRAM, BID
     Route: 048
  3. ASPIRIN                            /00002701/ [Concomitant]
     Indication: Product used for unknown indication
     Dosage: 81 MILLIGRAM, QD
     Route: 048
  4. ESTRADIOL [Concomitant]
     Active Substance: ESTRADIOL
     Indication: Product used for unknown indication
     Dosage: 1 MILLIGRAM, QD
     Route: 048
  5. LORAZEPAM [Concomitant]
     Active Substance: LORAZEPAM
     Indication: Product used for unknown indication
     Dosage: 1 MILLIGRAM, TID
     Route: 048
  6. HYDROXYZINE [Concomitant]
     Active Substance: HYDROXYZINE HYDROCHLORIDE
     Indication: Product used for unknown indication
     Dosage: 25 MILLIGRAM, Q8H (EVERY 8 HOURS AS NEEDED)
     Route: 048
  7. MELATONIN [Concomitant]
     Active Substance: MELATONIN
     Indication: Product used for unknown indication
     Dosage: 6 MILLIGRAM, QD (AT NIGHT)
     Route: 048
  8. METFORMIN [Concomitant]
     Active Substance: METFORMIN HYDROCHLORIDE
     Indication: Product used for unknown indication
     Dosage: 1000 MILLIGRAM, QD (AT NIGHT)
     Route: 048
  9. METOPROLOL TARTRATE [Concomitant]
     Active Substance: METOPROLOL TARTRATE
     Indication: Product used for unknown indication
     Dosage: 100 MILLIGRAM, BID
     Route: 048
  10. METOPROLOL TARTRATE [Concomitant]
     Active Substance: METOPROLOL TARTRATE
     Dosage: UNK
     Route: 048
  11. NAPROXEN [Concomitant]
     Active Substance: NAPROXEN
     Indication: Product used for unknown indication
     Dosage: 500 MILLIGRAM, BID
     Route: 048
  12. OMEPRAZOLE [Concomitant]
     Active Substance: OMEPRAZOLE
     Indication: Product used for unknown indication
     Dosage: 40 MILLIGRAM, QD
     Route: 048
  13. LEVOTHYROXINE [Concomitant]
     Active Substance: LEVOTHYROXINE
     Indication: Product used for unknown indication
     Dosage: 100 MICROGRAM, QD
     Route: 048

REACTIONS (5)
  - Rhabdomyolysis [Recovering/Resolving]
  - Acute kidney injury [Recovering/Resolving]
  - Metabolic acidosis [Unknown]
  - Fall [Unknown]
  - Drug interaction [Unknown]
